FAERS Safety Report 9158786 (Version 2)
Quarter: 2013Q1

REPORT INFORMATION
  Report Type: Spontaneous
  Country: US (occurrence: US)
  Receive Date: 20130109
  Receipt Date: 20130225
  Transmission Date: 20140127
  Serious: Yes (Other)
  Sender: FDA-Public Use
  Company Number: US-RB-043503-12

PATIENT
  Age: 32 None
  Sex: Female

DRUGS (7)
  1. GENERIC BUPRENORPHINE [Suspect]
     Indication: PREGNANCY
     Route: 065
     Dates: start: 20120612
  2. SUBOXONE FILM [Suspect]
     Indication: DRUG DEPENDENCE
     Dosage: SUBOXONE FILM; ^2 FILMS^
     Route: 060
     Dates: start: 20100816, end: 20120612
  3. VISTARIL [Suspect]
     Indication: SLEEP DISORDER
     Dosage: 25-50 MG DAILY
     Route: 065
     Dates: start: 20100816
  4. TRILEPTAL [Suspect]
     Indication: BIPOLAR DISORDER
     Route: 065
     Dates: end: 20120612
  5. PAXIL [Suspect]
     Indication: DEPRESSION
     Route: 065
     Dates: end: 20120612
  6. NICOTINE [Suspect]
     Indication: TOBACCO USER
     Dosage: 10 CIGARETTES DAILY
     Route: 065
  7. PRILOSEC [Suspect]
     Indication: DYSPEPSIA
     Route: 065

REACTIONS (2)
  - Exposure during pregnancy [Recovered/Resolved]
  - Abortion spontaneous [Recovered/Resolved]
